FAERS Safety Report 22168734 (Version 2)
Quarter: 2023Q2

REPORT INFORMATION
  Report Type: Report from Study
  Country: US (occurrence: None)
  Receive Date: 20230403
  Receipt Date: 20230419
  Transmission Date: 20230721
  Serious: Yes (Hospitalization, Other)
  Sender: FDA-Public Use
  Company Number: US-Eisai Medical Research-EC-2022-110259

PATIENT
  Age: 81 Year
  Sex: Female
  Weight: 77.3 kg

DRUGS (8)
  1. LECANEMAB [Suspect]
     Active Substance: LECANEMAB
     Indication: Dementia Alzheimer^s type
     Dosage: PLACEBO
     Route: 042
     Dates: start: 20200730, end: 20220121
  2. LECANEMAB [Suspect]
     Active Substance: LECANEMAB
     Dosage: OPEN LABEL
     Route: 042
     Dates: start: 20220204, end: 20220204
  3. LECANEMAB [Suspect]
     Active Substance: LECANEMAB
     Dosage: OPEN LABEL
     Route: 042
     Dates: start: 20220225, end: 20220225
  4. DONEPEZIL [Concomitant]
     Active Substance: DONEPEZIL
     Route: 048
     Dates: start: 20190307
  5. MEMANTINE ER [Concomitant]
     Dates: start: 20190307
  6. PRIMIDONE [Concomitant]
     Active Substance: PRIMIDONE
     Dates: start: 201803
  7. AMLODIPINE [Concomitant]
     Active Substance: AMLODIPINE BESYLATE
     Dates: start: 20190106
  8. ESCITALOPRAM [Concomitant]
     Active Substance: ESCITALOPRAM OXALATE
     Dates: start: 2017

REACTIONS (2)
  - Amyloid related imaging abnormality-oedema/effusion [Recovering/Resolving]
  - Amyloid related imaging abnormality-microhaemorrhages and haemosiderin deposits [Recovering/Resolving]

NARRATIVE: CASE EVENT DATE: 20220307
